FAERS Safety Report 8352212-2 (Version None)
Quarter: 2012Q2

REPORT INFORMATION
  Report Type: 
  Country: None (occurrence: None)
  Receive Date: 20120511
  Receipt Date: 20120503
  Transmission Date: 20120825
  Serious: Yes (Hospitalization)
  Sender: FDA-Public Use
  Company Number: US-BAYER-2011-112121

PATIENT
  Age: 43 Year
  Sex: Female
  Weight: 83.9 kg

DRUGS (9)
  1. TENORMIN [Concomitant]
     Dosage: 50 MG, QD
     Dates: start: 20081022
  2. ALBUTEROL [Concomitant]
     Dosage: UNK
     Dates: start: 20081022
  3. YAZ [Suspect]
     Indication: CONTRACEPTION
     Dosage: UNK
     Dates: start: 20070701, end: 20081001
  4. ZOLOFT [Concomitant]
     Dosage: 50 MG, QD
     Dates: start: 20081022
  5. DARVOCET-N 50 [Concomitant]
     Indication: PAIN
     Dosage: 1-2 TABS
     Dates: start: 20081022
  6. ADVAIR DISKUS 100/50 [Concomitant]
     Dosage: UNK
     Dates: start: 20081022
  7. RELPAX [Concomitant]
     Dosage: 40 MG, UNK
     Dates: start: 20081022
  8. VICODIN [Concomitant]
  9. YAZ [Suspect]
     Indication: MENSTRUAL CYCLE MANAGEMENT

REACTIONS (7)
  - PAIN [None]
  - MENTAL DISORDER [None]
  - ANXIETY [None]
  - DEEP VEIN THROMBOSIS [None]
  - EMOTIONAL DISTRESS [None]
  - INJURY [None]
  - POST THROMBOTIC SYNDROME [None]
